FAERS Safety Report 18077330 (Version 2)
Quarter: 2023Q1

REPORT INFORMATION
  Report Type: Report from Study
  Country: FR (occurrence: FR)
  Receive Date: 20200728
  Receipt Date: 20230331
  Transmission Date: 20230417
  Serious: Yes (Other)
  Sender: FDA-Public Use
  Company Number: None

PATIENT
  Age: 14 Year
  Sex: Female
  Weight: 52.1 kg

DRUGS (37)
  1. METHOTREXATE [Suspect]
     Active Substance: METHOTREXATE
     Indication: Acute myeloid leukaemia
     Dosage: AS INDUCTION THERAPY
     Route: 037
  2. CYTARABINE [Suspect]
     Active Substance: CYTARABINE
     Indication: Acute myeloid leukaemia
     Dosage: AS INDUCTION THERAPY: TOTAL DOSE: 1400MG/ SQ M
     Route: 065
  3. MITOXANTRONE [Suspect]
     Active Substance: MITOXANTRONE HYDROCHLORIDE
     Indication: Acute myeloid leukaemia
     Dosage: AS INDUCTION THERAPY: TOTAL DOSE 60 MG/M2
     Route: 065
  4. CLOFARABINE [Suspect]
     Active Substance: CLOFARABINE
     Indication: Acute myeloid leukaemia refractory
     Dosage: 40 MILLIGRAM/SQ. METER (OVER 2 HOURS)
     Dates: start: 20140310
  5. HYDROCORTISONE [Suspect]
     Active Substance: HYDROCORTISONE
     Indication: Acute myeloid leukaemia
     Dosage: AS INDUCTION THERAPY
     Route: 065
  6. PONATINIB [Suspect]
     Active Substance: PONATINIB
     Indication: Tyrosine kinase mutation
     Dosage: 45 MILLIGRAM DAILY: STARTING FROM DAY 15
     Route: 065
  7. DEXAMETHASONE [Suspect]
     Active Substance: DEXAMETHASONE
     Indication: Acute myeloid leukaemia
     Route: 037
  8. AMSACRINE [Suspect]
     Active Substance: AMSACRINE
     Indication: Acute myeloid leukaemia
     Dosage: AS FIRST CONSOLIDATION THERAPY: TOTAL DOSE 300 MG/M2
     Route: 065
  9. CLOFARABINE [Concomitant]
     Active Substance: CLOFARABINE
     Indication: Acute myeloid leukaemia
     Dosage: 40 MG/ SQ M OVER 2 HOURS
     Route: 065
  10. DAUNORUBICIN [Concomitant]
     Active Substance: DAUNORUBICIN
     Indication: Acute myeloid leukaemia
     Dosage: 60 MG/ SQ M OVER 1 HOUR
     Route: 065
     Dates: start: 20140310
  11. GEMTUZUMAB OZOGAMICIN [Concomitant]
     Active Substance: GEMTUZUMAB OZOGAMICIN
     Indication: Acute myeloid leukaemia
     Dosage: ADMINISTERED OVER 2 HOURS ON DAYS 1, 4, AND 7
     Route: 065
  12. FLUDARABINE [Concomitant]
     Active Substance: FLUDARABINE PHOSPHATE
     Indication: Acute myeloid leukaemia
     Dosage: ADMINISTERED OVER 30 MIN ON DAYS 1 TO 5
     Route: 065
  13. CYTARABINE [Concomitant]
     Active Substance: CYTARABINE
     Indication: Acute myeloid leukaemia recurrent
  14. VFEND [Concomitant]
     Active Substance: VORICONAZOLE
     Indication: Product used for unknown indication
  15. CASPOFUNGIN [Concomitant]
     Active Substance: CASPOFUNGIN
     Indication: Product used for unknown indication
  16. CYCLOPHOSPHAMIDE [Concomitant]
     Active Substance: CYCLOPHOSPHAMIDE
     Indication: Bone marrow conditioning regimen
  17. AMPHOTERICIN B [Concomitant]
     Active Substance: AMPHOTERICIN B
     Indication: Product used for unknown indication
  18. AMIKACIN [Concomitant]
     Active Substance: AMIKACIN
     Indication: Product used for unknown indication
  19. ACETAMINOPHEN [Concomitant]
     Active Substance: ACETAMINOPHEN
     Indication: Product used for unknown indication
  20. VORICONAZOLE [Concomitant]
     Active Substance: VORICONAZOLE
     Indication: Product used for unknown indication
  21. RANITIDINE [Concomitant]
     Active Substance: RANITIDINE
     Indication: Abdominal pain upper
  22. ATARAX [Concomitant]
     Active Substance: HYDROXYZINE HYDROCHLORIDE
     Indication: Product used for unknown indication
  23. VANCOMYCIN [Concomitant]
     Active Substance: VANCOMYCIN
     Indication: Product used for unknown indication
  24. AMITRIPTYLINE HYDROCHLORIDE [Concomitant]
     Active Substance: AMITRIPTYLINE HYDROCHLORIDE
     Indication: Product used for unknown indication
  25. DEXAMETHASONE\NEOMYCIN SULFATE [Concomitant]
     Active Substance: DEXAMETHASONE\NEOMYCIN SULFATE
     Indication: Product used for unknown indication
  26. CYTARABINE [Concomitant]
     Active Substance: CYTARABINE
     Indication: Tyrosine kinase mutation
     Dosage: 10 GRAM PER SQUARE METRE
     Dates: start: 20140310
  27. URSODIOL [Concomitant]
     Active Substance: URSODIOL
     Indication: Product used for unknown indication
  28. PIPERACILLIN SODIUM\TAZOBACTAM SODIUM [Concomitant]
     Active Substance: PIPERACILLIN SODIUM\TAZOBACTAM SODIUM
     Indication: Product used for unknown indication
  29. CYCLOSPORINE [Concomitant]
     Active Substance: CYCLOSPORINE
     Indication: Immunosuppressant drug therapy
     Dates: start: 20140414, end: 201404
  30. BUSULFAN [Concomitant]
     Active Substance: BUSULFAN
     Indication: Bone marrow conditioning regimen
     Dates: start: 20140414, end: 201404
  31. PIPERACILLIN [Concomitant]
     Active Substance: PIPERACILLIN
     Indication: Product used for unknown indication
  32. DAUNORUBICIN [Concomitant]
     Active Substance: DAUNORUBICIN
     Indication: Acute myeloid leukaemia
     Dosage: 180 MG/M2
     Route: 065
  33. CYTARABINE [Suspect]
     Active Substance: CYTARABINE
     Indication: Product used for unknown indication
     Dosage: AS FIRST CONSOLIDATION THERAPY; TOTAL DOSE: 18 G/M2
     Route: 065
  34. PONATINIB [Suspect]
     Active Substance: PONATINIB
     Indication: Tyrosine kinase mutation
     Dates: end: 201410
  35. PONATINIB [Suspect]
     Active Substance: PONATINIB
     Indication: Tyrosine kinase mutation
     Dosage: 45 MILLIGRAM, QD
     Route: 065
     Dates: start: 20140614, end: 20140710
  36. PONATINIB [Suspect]
     Active Substance: PONATINIB
     Indication: Tyrosine kinase mutation
     Dosage: 45 MILLIGRAM, QD
     Route: 065
     Dates: start: 201403, end: 201404
  37. CLOFARABINE [Concomitant]
     Active Substance: CLOFARABINE
     Indication: Acute myeloid leukaemia recurrent
     Route: 065

REACTIONS (21)
  - Drug resistance [Unknown]
  - Off label use [Unknown]
  - Klebsiella sepsis [Unknown]
  - Arthralgia [Recovered/Resolved]
  - Rash maculo-papular [Recovered/Resolved]
  - Pain in jaw [Recovered/Resolved]
  - Herpes zoster [Unknown]
  - Headache [Recovered/Resolved]
  - Neuropathy peripheral [Unknown]
  - Lupus-like syndrome [Recovered/Resolved]
  - Acute graft versus host disease [Recovered/Resolved]
  - Ovarian failure [Unknown]
  - Bone marrow failure [Recovered/Resolved with Sequelae]
  - Platelet count decreased [Recovered/Resolved]
  - Sepsis [Unknown]
  - Mucosal inflammation [Unknown]
  - Cough [Unknown]
  - Graft versus host disease [Recovered/Resolved]
  - Capillary leak syndrome [Unknown]
  - Ear infection staphylococcal [Unknown]
  - Pain in extremity [Recovered/Resolved]

NARRATIVE: CASE EVENT DATE: 20140401
